FAERS Safety Report 8033557-2 (Version None)
Quarter: 2012Q1

REPORT INFORMATION
  Report Type: 
  Country: None (occurrence: None)
  Receive Date: 20120110
  Receipt Date: 20120103
  Transmission Date: 20120608
  Serious: Yes (Other)
  Sender: FDA-Public Use
  Company Number: DE-ELI_LILLY_AND_COMPANY-DE201201000674

PATIENT
  Age: 68 Year
  Sex: Male
  Weight: 54 kg

DRUGS (2)
  1. ALIMTA [Suspect]
     Indication: NON-SMALL CELL LUNG CANCER
     Dosage: 500 MG/M2, UNKNOWN
     Route: 042
     Dates: start: 20110527, end: 20110620
  2. CISPLATIN [Concomitant]
     Indication: NON-SMALL CELL LUNG CANCER
     Dosage: 75 MG/M2, UNK
     Route: 042
     Dates: start: 20110527, end: 20110620

REACTIONS (3)
  - HEPATIC LESION [None]
  - LIVER FUNCTION TEST ABNORMAL [None]
  - HEPATOTOXICITY [None]
